FAERS Safety Report 22387034 (Version 1)
Quarter: 2023Q2

REPORT INFORMATION
  Report Type: Spontaneous
  Country: DE (occurrence: DE)
  Receive Date: 20230531
  Receipt Date: 20230531
  Transmission Date: 20230721
  Serious: Yes (Life-Threatening, Other)
  Sender: FDA-Public Use
  Company Number: DE-SA-200213728DE

PATIENT
  Age: 86 Year
  Sex: Female
  Weight: 56 kg

DRUGS (44)
  1. NOREPINEPHRINE [Suspect]
     Active Substance: NOREPINEPHRINE
     Indication: Coronary artery surgery
     Dosage: UNK UNK,PRN
     Route: 042
     Dates: start: 20000913, end: 20000913
  2. ASPIRIN [Suspect]
     Active Substance: ASPIRIN
     Indication: Coagulopathy
     Dosage: 100 MG,QD
     Route: 048
     Dates: start: 20000828, end: 20000831
  3. ASPIRIN [Suspect]
     Active Substance: ASPIRIN
     Dosage: 100 MG,QD
     Route: 048
     Dates: start: 20000914, end: 20000917
  4. DIAZEPAM [Suspect]
     Active Substance: DIAZEPAM
     Indication: Sedative therapy
     Dosage: UNK UNK,PRN
     Route: 042
     Dates: start: 20000913, end: 20000913
  5. PLAVIX [Suspect]
     Active Substance: CLOPIDOGREL BISULFATE
     Indication: Anticoagulant therapy
     Dosage: 75 MG,QD
     Route: 048
     Dates: start: 20000913, end: 20000917
  6. NOVALGIN (METAMIZOLE SODIUM) [Suspect]
     Active Substance: METAMIZOLE SODIUM
     Indication: Pain
     Dosage: 200 GTT DROPS, QD
     Route: 048
     Dates: start: 20000820, end: 20000917
  7. VIOXX [Suspect]
     Active Substance: ROFECOXIB
     Indication: Rheumatic disorder
     Dosage: 25 MG,QD
     Route: 048
     Dates: start: 20000907, end: 20000917
  8. GLYBURIDE [Suspect]
     Active Substance: GLYBURIDE
     Indication: Diabetes mellitus
     Dosage: 3 DF, QD
     Route: 048
     Dates: start: 20000820, end: 20000917
  9. LORMETAZEPAM [Suspect]
     Active Substance: LORMETAZEPAM
     Indication: Sedative therapy
     Dosage: 2 DF
     Route: 048
     Dates: start: 20000913, end: 20000913
  10. CLONIDINE [Suspect]
     Active Substance: CLONIDINE
     Indication: Hypertension
     Dosage: UNK UNK,PRN
     Route: 042
     Dates: start: 20000913, end: 20000913
  11. CLONIDINE [Suspect]
     Active Substance: CLONIDINE
     Indication: Coronary artery surgery
  12. LIDOCAINE [Suspect]
     Active Substance: LIDOCAINE
     Indication: Local anaesthesia
     Dosage: UNK UNK, PRN
     Route: 058
     Dates: start: 20000913, end: 20000913
  13. MOLSIDOMINE [Suspect]
     Active Substance: MOLSIDOMINE
     Indication: Coronary artery disease
     Dosage: 8 MG, QD
     Route: 048
     Dates: start: 20000820, end: 20000914
  14. CLEMASTINE [Suspect]
     Active Substance: CLEMASTINE
     Indication: Pemphigoid
     Dosage: 4 DF, QD
     Route: 048
     Dates: start: 20000820, end: 20000828
  15. CLEMASTINE [Suspect]
     Active Substance: CLEMASTINE
     Dosage: 2 DF, QD
     Route: 048
     Dates: start: 20000820, end: 20000828
  16. FENTANYL [Suspect]
     Active Substance: FENTANYL
     Indication: Pain
     Dosage: 1 DF, TID
     Dates: start: 20000820, end: 20000916
  17. FENTANYL [Suspect]
     Active Substance: FENTANYL
     Dosage: 125 UG, TID
     Route: 062
  18. FENTANYL [Suspect]
     Active Substance: FENTANYL
     Dosage: 50 UG, TID
     Route: 062
  19. FENTANYL [Suspect]
     Active Substance: FENTANYL
     Dosage: 75 UG, TID
     Route: 062
  20. FENTANYL [Suspect]
     Active Substance: FENTANYL
     Dosage: 100 UG, TID
     Route: 062
  21. FENTANYL [Suspect]
     Active Substance: FENTANYL
     Dosage: 150 UG, TID
     Route: 062
  22. INSULIN NOS [Suspect]
     Active Substance: INSULIN NOS
     Indication: Type 2 diabetes mellitus
     Dosage: UNK UNK,PRN
     Route: 058
     Dates: start: 20000820, end: 20000917
  23. INSULIN NOS [Suspect]
     Active Substance: INSULIN NOS
     Dosage: UNK
     Route: 042
     Dates: start: 20000913, end: 20000913
  24. DALTEPARIN SODIUM [Suspect]
     Active Substance: DALTEPARIN SODIUM
     Indication: Anticoagulant therapy
     Dosage: UNK
     Route: 058
     Dates: start: 20000820, end: 20000917
  25. DALTEPARIN SODIUM [Suspect]
     Active Substance: DALTEPARIN SODIUM
     Indication: Thrombosis prophylaxis
  26. DALTEPARIN SODIUM [Suspect]
     Active Substance: DALTEPARIN SODIUM
     Indication: Coagulopathy
  27. PREDNISONE [Suspect]
     Active Substance: PREDNISONE
     Indication: Dermatitis bullous
     Dosage: UNK
     Route: 048
     Dates: start: 20000820, end: 20000917
  28. PREDNISONE [Suspect]
     Active Substance: PREDNISONE
     Dosage: 80 MG, QD
     Route: 048
  29. PREDNISONE [Suspect]
     Active Substance: PREDNISONE
     Dosage: 60 MG, QD
     Route: 048
  30. PREDNISONE [Suspect]
     Active Substance: PREDNISONE
     Dosage: 50 MG, QD
     Route: 048
  31. PREDNISONE [Suspect]
     Active Substance: PREDNISONE
     Dosage: 40 MG, QD
     Route: 048
  32. TORSEMIDE [Suspect]
     Active Substance: TORSEMIDE
     Indication: Cardiac failure
     Dosage: 5 MG,QD
     Route: 048
     Dates: start: 20000820, end: 20000917
  33. ISOSORBIDE MONONITRATE [Suspect]
     Active Substance: ISOSORBIDE MONONITRATE
     Indication: Angina pectoris
     Dosage: 1 DF, QD
     Route: 048
     Dates: start: 20000820, end: 20000917
  34. OMEPRAZOLE [Suspect]
     Active Substance: OMEPRAZOLE
     Indication: Prophylaxis
     Dosage: 20 MG,QD
     Route: 048
     Dates: start: 20000820, end: 20000917
  35. OMEPRAZOLE [Suspect]
     Active Substance: OMEPRAZOLE
     Indication: Prophylaxis against gastrointestinal ulcer
  36. ESTRIOL [Suspect]
     Active Substance: ESTRIOL
     Indication: Vaginal disorder
     Dosage: 1 DF, QD
     Route: 067
     Dates: start: 20000820, end: 20000906
  37. CALCIUM [Concomitant]
     Active Substance: CALCIUM
     Indication: Osteoporosis
     Dosage: 1 UNK,QD
     Route: 048
     Dates: start: 20000820, end: 20000917
  38. DEXTROSE [Concomitant]
     Active Substance: DEXTROSE\DEXTROSE MONOHYDRATE
     Indication: Stupor
     Dosage: UNK
     Route: 042
     Dates: start: 20000913, end: 20000913
  39. DEXTROSE [Concomitant]
     Active Substance: DEXTROSE\DEXTROSE MONOHYDRATE
     Indication: Blood pressure abnormal
  40. DEXTROSE [Concomitant]
     Active Substance: DEXTROSE\DEXTROSE MONOHYDRATE
     Indication: Diabetes mellitus
  41. DEXTROSE [Concomitant]
     Active Substance: DEXTROSE\DEXTROSE MONOHYDRATE
     Indication: Cardiovascular disorder
  42. COTRIM [Concomitant]
     Active Substance: SULFAMETHOXAZOLE\TRIMETHOPRIM
     Indication: Urinary tract infection
     Dosage: 1 DF, QD
     Route: 048
     Dates: start: 20000916, end: 20000917
  43. SOLUCION RINGER [CALCIUM CHLORIDE;POTASSIUM CHLORIDE;SODIUM LACTATE] [Concomitant]
     Indication: Fluid retention
     Dosage: UNK
     Route: 042
     Dates: start: 20000913, end: 20000914
  44. SOLUCION RINGER [CALCIUM CHLORIDE;POTASSIUM CHLORIDE;SODIUM LACTATE] [Concomitant]
     Indication: Electrolyte depletion

REACTIONS (6)
  - Toxic epidermal necrolysis [Recovered/Resolved]
  - Erythema [Recovered/Resolved]
  - Blister [Recovered/Resolved]
  - Mouth ulceration [Recovered/Resolved]
  - Genital erosion [Recovered/Resolved]
  - Conjunctivitis [Recovered/Resolved]

NARRATIVE: CASE EVENT DATE: 20000916
